FAERS Safety Report 6414708-X (Version None)
Quarter: 2009Q4

REPORT INFORMATION
  Report Type: 
  Country: None (occurrence: None)
  Receive Date: 20091026
  Receipt Date: 20091015
  Transmission Date: 20100525
  Serious: Yes (Hospitalization)
  Sender: FDA-Public Use
  Company Number: US-BAXTER-2009BH016047

PATIENT
  Age: 61 Year
  Sex: Female

DRUGS (1)
  1. DIANEAL [Suspect]
     Indication: PERITONEAL DIALYSIS
     Route: 033
     Dates: start: 20071110

REACTIONS (5)
  - GALLBLADDER DISORDER [None]
  - NAUSEA [None]
  - PAIN [None]
  - POST PROCEDURAL HAEMORRHAGE [None]
  - VOMITING [None]
